FAERS Safety Report 8238775-6 (Version None)
Quarter: 2012Q1

REPORT INFORMATION
  Report Type: 
  Country: None (occurrence: None)
  Receive Date: 20120327
  Receipt Date: 20120319
  Transmission Date: 20120608
  Serious: Yes (Hospitalization, Other)
  Sender: FDA-Public Use
  Company Number: US-ELI_LILLY_AND_COMPANY-US201203006134

PATIENT
  Sex: Female

DRUGS (17)
  1. CALCIUM CARBONATE [Concomitant]
  2. ASPIRIN [Concomitant]
  3. VICODIN [Concomitant]
     Indication: PAIN
  4. COUMADIN [Concomitant]
     Dosage: UNK, UNKNOWN
  5. SYNTHROID [Concomitant]
  6. NORVASC [Concomitant]
  7. ALLOPURINOL [Concomitant]
  8. HYDRALAZINE HCL [Concomitant]
  9. NEXIUM [Concomitant]
     Dosage: UNK, UNKNOWN
  10. MECLIZINE [Concomitant]
     Indication: DIZZINESS
     Dosage: UNK, PRN
  11. MAG-OX [Concomitant]
  12. COREG [Concomitant]
  13. LOVAZA [Concomitant]
  14. AMBIEN [Concomitant]
  15. CALCIUM CARBONATE [Concomitant]
     Indication: PAIN
     Dosage: 5000 MG, UNKNOWN
  16. FORTEO [Suspect]
     Indication: OSTEOPOROSIS
     Dosage: 20 UG, BID
  17. VITAMIN D [Concomitant]

REACTIONS (10)
  - CONSTIPATION [None]
  - LOSS OF CONSCIOUSNESS [None]
  - HEART VALVE INCOMPETENCE [None]
  - OFF LABEL USE [None]
  - CARDIAC PACEMAKER INSERTION [None]
  - THROMBOSIS [None]
  - PARAESTHESIA [None]
  - INCORRECT DRUG ADMINISTRATION DURATION [None]
  - OVERDOSE [None]
  - BLOOD CALCIUM DECREASED [None]
